FAERS Safety Report 5504055-2 (Version None)
Quarter: 2007Q4

REPORT INFORMATION
  Report Type: 
  Country: None (occurrence: None)
  Receive Date: 20071030
  Receipt Date: 20071022
  Transmission Date: 20080405
  Serious: No
  Sender: FDA-Public Use
  Company Number: 20074192

PATIENT
  Sex: Male

DRUGS (1)
  1. LIORESAL [Suspect]
     Indication: MUSCLE SPASTICITY
     Dosage: 27 MCG, DAILY, INTRATHECAL
     Route: 037

REACTIONS (3)
  - CATHETER RELATED COMPLICATION [None]
  - FALL [None]
  - ILL-DEFINED DISORDER [None]
